FAERS Safety Report 11830712 (Version 4)
Quarter: 2016Q1

REPORT INFORMATION
  Report Type: Report from Study
  Country: US (occurrence: US)
  Receive Date: 20151214
  Receipt Date: 20160111
  Transmission Date: 20160525
  Serious: No
  Sender: FDA-Public Use
  Company Number: US-AMGEN-USASL2015131516

PATIENT
  Age: 65 Year
  Sex: Female

DRUGS (2)
  1. ENBREL [Suspect]
     Active Substance: ETANERCEPT
     Indication: RHEUMATOID ARTHRITIS
     Dosage: 50 MG, WEEKLY
     Route: 065
     Dates: start: 20140601
  2. ENBREL [Suspect]
     Active Substance: ETANERCEPT
     Dosage: EVERY WEEK AND HALF
     Route: 065

REACTIONS (3)
  - Laboratory test abnormal [Unknown]
  - Rheumatoid factor increased [Unknown]
  - Intentional product misuse [Unknown]
